FAERS Safety Report 8937210 (Version 1)
Quarter: 2012Q4

REPORT INFORMATION
  Report Type: Spontaneous
  Country: US (occurrence: None)
  Receive Date: 20121128
  Receipt Date: 20121128
  Transmission Date: 20130627
  Serious: No
  Sender: FDA-Public Use
  Company Number: None

PATIENT
  Age: 61 Year
  Sex: Male
  Weight: 97.52 kg

DRUGS (2)
  1. CITALOPRAM 10 MG [Suspect]
     Indication: DEPRESSION
     Route: 048
     Dates: start: 20120201, end: 20120227
  2. CITALOPRAM 20 MG [Suspect]
     Indication: DEPRESSION
     Route: 048
     Dates: start: 20120227, end: 20121127

REACTIONS (1)
  - Patellofemoral pain syndrome [None]
